FAERS Safety Report 5911252-0 (Version None)
Quarter: 2008Q4

REPORT INFORMATION
  Report Type: 
  Country: None (occurrence: None)
  Receive Date: 20081007
  Receipt Date: 20081003
  Transmission Date: 20090506
  Serious: Yes (Other)
  Sender: FDA-Public Use
  Company Number: JP-ABBOTT-08P-087-0479649-00

PATIENT
  Age: 79 Year
  Sex: Female

DRUGS (10)
  1. CLARITH TABLETS [Suspect]
     Indication: HELICOBACTER INFECTION
     Route: 048
     Dates: start: 20080825, end: 20080825
  2. OMEPRAZOLE [Suspect]
     Indication: HELICOBACTER INFECTION
     Route: 048
     Dates: start: 20080825, end: 20080825
  3. AMOXICILLIN TRIHYDRATE [Suspect]
     Indication: HELICOBACTER INFECTION
     Route: 048
     Dates: start: 20080825, end: 20080825
  4. SODIUM RISEDRONATE HYDRATE [Concomitant]
     Indication: OSTEOPOROSIS
     Route: 048
     Dates: start: 20070711
  5. ETHYL ICOSAPENTATE [Concomitant]
     Indication: HYPERLIPIDAEMIA
     Route: 048
     Dates: start: 20070723
  6. ELCATONIN [Concomitant]
     Indication: OSTEOPOROSIS
     Route: 050
     Dates: start: 20070723
  7. LORATADINE [Concomitant]
     Indication: URTICARIA CHRONIC
     Route: 048
     Dates: start: 20071013
  8. ALLERGEN EXTRACTS [Concomitant]
     Indication: RHINITIS ALLERGIC
     Route: 050
     Dates: start: 20071020
  9. MEQUITAZINE [Concomitant]
     Indication: URTICARIA CHRONIC
     Route: 048
     Dates: start: 20080411
  10. PRAVASTATIN SODIUM [Concomitant]
     Indication: HYPERLIPIDAEMIA
     Route: 048
     Dates: start: 20080621

REACTIONS (1)
  - ANGINA PECTORIS [None]
